FAERS Safety Report 11218439 (Version 1)
Quarter: 2015Q2

REPORT INFORMATION
  Report Type: Spontaneous
  Country: JP (occurrence: JP)
  Receive Date: 20150625
  Receipt Date: 20150625
  Transmission Date: 20150821
  Serious: Yes (Life-Threatening)
  Sender: FDA-Public Use
  Company Number: JP-PFIZER INC-2015209728

PATIENT
  Age: 10 Decade
  Sex: Female

DRUGS (2)
  1. ARTIST [Suspect]
     Active Substance: CARVEDILOL
     Dosage: 5 MG, DAILY
     Route: 048
  2. AMLODIN [Suspect]
     Active Substance: AMLODIPINE BESYLATE
     Dosage: 2.5 MG, DAILY
     Route: 048

REACTIONS (1)
  - Atrioventricular block complete [Recovering/Resolving]

NARRATIVE: CASE EVENT DATE: 20150616
